FAERS Safety Report 12721159 (Version 1)
Quarter: 2016Q3

REPORT INFORMATION
  Report Type: Spontaneous
  Country: US (occurrence: US)
  Receive Date: 20160907
  Receipt Date: 20160907
  Transmission Date: 20161109
  Serious: No
  Sender: FDA-Public Use
  Company Number: None

PATIENT
  Age: 22 Year

DRUGS (1)
  1. FENTANYL 50MCG/ML 55ML MONOJECT SYRINGE [Suspect]
     Active Substance: FENTANYL

REACTIONS (2)
  - Syringe issue [None]
  - Device difficult to use [None]

NARRATIVE: CASE EVENT DATE: 20160805
